FAERS Safety Report 4385035-X (Version None)
Quarter: 2004Q2

REPORT INFORMATION
  Report Type: 
  Country: None (occurrence: None)
  Receive Date: 20040625
  Receipt Date: 20040512
  Transmission Date: 20050107
  Serious: Yes (Death, Life-Threatening, Hospitalization)
  Sender: FDA-Public Use
  Company Number: FR-GLAXOSMITHKLINE-B0332922A

PATIENT
  Age: 86 Year
  Sex: Female
  Weight: 66 kg

DRUGS (4)
  1. AVANDIA [Suspect]
     Dosage: 4MG PER DAY
     Route: 048
     Dates: start: 20030623
  2. GLIBENESE [Concomitant]
     Dosage: 15MG PER DAY
     Route: 048
     Dates: start: 19980901
  3. UNICORDIUM [Concomitant]
     Indication: HYPERTENSION
     Dosage: 200MG PER DAY
     Route: 048
     Dates: start: 19980901
  4. DAFLON [Concomitant]
     Indication: VENOUS INSUFFICIENCY
     Dosage: 1000MG PER DAY
     Route: 048
     Dates: start: 19980901

REACTIONS (6)
  - DEHYDRATION [None]
  - DIABETIC KETOACIDOSIS [None]
  - GENERAL PHYSICAL HEALTH DETERIORATION [None]
  - HYPERGLYCAEMIA [None]
  - METASTASES TO LIVER [None]
  - PANCREATIC CARCINOMA [None]
